FAERS Safety Report 6327587-6 (Version None)
Quarter: 2009Q3

REPORT INFORMATION
  Report Type: 
  Country: None (occurrence: None)
  Receive Date: 20090821
  Receipt Date: 20090810
  Transmission Date: 20100115
  Serious: Yes (Hospitalization)
  Sender: FDA-Public Use
  Company Number: ADR11722009

PATIENT
  Age: 60 Year
  Sex: Male

DRUGS (3)
  1. METFORMIN HCL [Suspect]
     Dosage: 500 MG - 100 TABLETS (OVERDOSE);
  2. GLIBENCLAMIDE [Concomitant]
  3. IBUPROFEN [Concomitant]

REACTIONS (19)
  - ABDOMINAL PAIN [None]
  - AGITATION [None]
  - ANURIA [None]
  - APNOEA [None]
  - BODY TEMPERATURE DECREASED [None]
  - CONTINUOUS HAEMODIAFILTRATION [None]
  - DIALYSIS [None]
  - DRUG TOXICITY [None]
  - LACTIC ACIDOSIS [None]
  - MEAN ARTERIAL PRESSURE INCREASED [None]
  - METABOLIC ACIDOSIS [None]
  - OVERDOSE [None]
  - POLYURIA [None]
  - SOMNOLENCE [None]
  - TACHYPNOEA [None]
  - THERAPEUTIC RESPONSE DECREASED [None]
  - VASCULAR RESISTANCE SYSTEMIC DECREASED [None]
  - VENTRICULAR FIBRILLATION [None]
  - VOMITING [None]
